FAERS Safety Report 11218457 (Version 4)
Quarter: 2015Q3

REPORT INFORMATION
  Report Type: Spontaneous
  Country: US (occurrence: US)
  Receive Date: 20150625
  Receipt Date: 20150831
  Transmission Date: 20151125
  Serious: No
  Sender: FDA-Public Use
  Company Number: US-PFIZER INC-2015206800

PATIENT
  Age: 68 Year
  Sex: Female

DRUGS (2)
  1. REVATIO [Suspect]
     Active Substance: SILDENAFIL CITRATE
     Dosage: 20 MG, 3X/DAY
  2. REVATIO [Suspect]
     Active Substance: SILDENAFIL CITRATE
     Dosage: 200 MG, 4 TABLETS THREE TIMES A DAY

REACTIONS (6)
  - Alopecia [Recovered/Resolved]
  - Intentional product use issue [Unknown]
  - Skin atrophy [Not Recovered/Not Resolved]
  - Contusion [Not Recovered/Not Resolved]
  - Dyspepsia [Not Recovered/Not Resolved]
  - Hair growth abnormal [Not Recovered/Not Resolved]
